FAERS Safety Report 5096711-8 (Version None)
Quarter: 2006Q3

REPORT INFORMATION
  Report Type: 
  Country: None (occurrence: None)
  Receive Date: 20060831
  Receipt Date: 20060823
  Transmission Date: 20061208
  Serious: Yes (Other)
  Sender: FDA-Public Use
  Company Number: 2006-04639

PATIENT
  Age: 68 Year
  Sex: Male

DRUGS (3)
  1. PREDNISONE [Suspect]
     Indication: ANTIINFLAMMATORY THERAPY
     Dosage: 5 2  MG, DAILY
     Dates: start: 20010101, end: 20010101
  2. CLOPIDOGREL [Suspect]
     Indication: THROMBOSIS PROPHYLAXIS
     Dosage: 75 MG, DAILY, ORAL
     Route: 048
     Dates: start: 20010101, end: 20010101
  3. AZATHIOPRINE [Concomitant]

REACTIONS (1)
  - ARTERIOSCLEROSIS [None]
